FAERS Safety Report 18602456 (Version 1)
Quarter: 2020Q4

REPORT INFORMATION
  Report Type: Report from Study
  Country: None (occurrence: IL)
  Receive Date: 20201211
  Receipt Date: 20201211
  Transmission Date: 20210114
  Serious: Yes (Hospitalization)
  Sender: FDA-Public Use
  Company Number: IL-ABBVIE-20K-082-3683759-00

PATIENT
  Sex: Female

DRUGS (4)
  1. DUODOPA [Suspect]
     Active Substance: CARBIDOPA\LEVODOPA
     Dosage: MD (ML) 16.0; CD (ML/H) 6.0; ED (ML) 3.0; THERAPY DURATION (HRS) REMAINS AT 16
     Route: 050
     Dates: start: 2020, end: 2020
  2. DUODOPA [Suspect]
     Active Substance: CARBIDOPA\LEVODOPA
     Dosage: MD (ML) 11.0; CD (ML/H)  3.3; ED (ML) 2.0; THERAPY DURATION (HRS) REMAINS AT 16
     Route: 050
     Dates: start: 2020, end: 2020
  3. DUODOPA [Suspect]
     Active Substance: CARBIDOPA\LEVODOPA
     Indication: PARKINSON^S DISEASE
     Route: 050
     Dates: start: 20200630, end: 2020
  4. DUODOPA [Suspect]
     Active Substance: CARBIDOPA\LEVODOPA
     Dosage: MD (ML) 8.0; CD (ML/H) 1.7; ED (ML) 1.0; THERAPY DURATION (HRS) REMAINS AT 16
     Route: 050
     Dates: start: 2020

REACTIONS (1)
  - Aspiration [Unknown]

NARRATIVE: CASE EVENT DATE: 2020
